FAERS Safety Report 7583738-7 (Version None)
Quarter: 2011Q2

REPORT INFORMATION
  Report Type: 
  Country: None (occurrence: None)
  Receive Date: 20110630
  Receipt Date: 20110620
  Transmission Date: 20111010
  Serious: Yes (Hospitalization)
  Sender: FDA-Public Use
  Company Number: GB-EISAI INC-E7389-01230-CLI-GB

PATIENT
  Sex: Female
  Weight: 47 kg

DRUGS (7)
  1. AMITRIPTYLINE HCL [Concomitant]
     Indication: PAIN
     Route: 048
     Dates: start: 20100620
  2. METOCLOPRAMIDE [Concomitant]
     Indication: NAUSEA
     Route: 048
     Dates: start: 20110204
  3. PREGABALIN [Concomitant]
     Indication: PAIN
     Route: 048
     Dates: start: 20110207
  4. MORPHINE SULFATE [Concomitant]
     Indication: PAIN
     Route: 048
     Dates: start: 20110113
  5. EPIRUBICIN HYDROCHLORIDE [Suspect]
     Indication: LUNG ADENOCARCINOMA METASTATIC
     Route: 041
     Dates: start: 20110207
  6. CAPECITABINE [Suspect]
     Indication: LUNG ADENOCARCINOMA METASTATIC
     Route: 048
     Dates: end: 20110426
  7. INFUMORPH [Concomitant]
     Indication: PAIN
     Route: 048
     Dates: start: 20110111

REACTIONS (4)
  - VOMITING [None]
  - PYREXIA [None]
  - ERYTHEMA [None]
  - LETHARGY [None]
